FAERS Safety Report 14321163 (Version 4)
Quarter: 2018Q3

REPORT INFORMATION
  Report Type: Spontaneous
  Country: GB (occurrence: GB)
  Receive Date: 20171223
  Receipt Date: 20180920
  Transmission Date: 20181010
  Serious: Yes (Life-Threatening, Hospitalization, Other)
  Sender: FDA-Public Use
  Company Number: GB-AUROBINDO-AUR-APL-2017-46764

PATIENT
  Age: 52 Year
  Sex: Female

DRUGS (3)
  1. OMEPRAZOLE. [Concomitant]
     Active Substance: OMEPRAZOLE
     Indication: GASTROOESOPHAGEAL REFLUX DISEASE
     Dosage: UNK
     Route: 016
  2. CEFALEXIN [Suspect]
     Active Substance: CEPHALEXIN
     Indication: URINARY TRACT INFECTION
     Dosage: UNK
     Route: 065
  3. CEFALEXIN [Suspect]
     Active Substance: CEPHALEXIN
     Dosage: UNK

REACTIONS (15)
  - Toxic epidermal necrolysis [Recovered/Resolved]
  - Headache [Unknown]
  - Conjunctival oedema [Unknown]
  - Vanishing bile duct syndrome [Recovered/Resolved]
  - Blister [Unknown]
  - Pyrexia [Unknown]
  - Biliary dilatation [Recovered/Resolved]
  - Acute kidney injury [Recovered/Resolved]
  - Conjunctival hyperaemia [Unknown]
  - Mucosal inflammation [Unknown]
  - Sepsis [Recovered/Resolved]
  - Hepatic encephalopathy [Recovered/Resolved]
  - Epidermal necrosis [Unknown]
  - Apoptosis [Unknown]
  - Rash erythematous [Unknown]
